FAERS Safety Report 4726436-7 (Version None)
Quarter: 2005Q3

REPORT INFORMATION
  Report Type: 
  Country: None (occurrence: None)
  Receive Date: 20050726
  Receipt Date: 20050511
  Transmission Date: 20060218
  Serious: Yes (Life-Threatening)
  Sender: FDA-Public Use
  Company Number: REM_00119_2005

PATIENT
  Age: 47 Year
  Sex: Female
  Weight: 54 kg

DRUGS (3)
  1. REMODULIN [Suspect]
     Indication: PULMONARY HYPERTENSION
     Dosage: 220 NG/KG/MIN CONTINUOUS IV
     Route: 036
     Dates: start: 20050418, end: 20050427
  2. PREDNSIONE [Concomitant]
  3. COUMADIN [Concomitant]

REACTIONS (1)
  - PULMONARY HYPERTENSION [None]
